FAERS Safety Report 5735559-5 (Version None)
Quarter: 2008Q2

REPORT INFORMATION
  Report Type: 
  Country: None (occurrence: None)
  Receive Date: 20080512
  Receipt Date: 20080415
  Transmission Date: 20081010
  Serious: No
  Sender: FDA-Public Use
  Company Number: US-BOEHRINGER INGELHEIM GMBH, GERMANY-2008-BP-06007BP

PATIENT
  Sex: Female

DRUGS (2)
  1. ZANTAC [Suspect]
     Indication: GASTRIC ULCER
     Route: 048
     Dates: start: 20080401
  2. NEXIUM [Concomitant]
     Indication: GASTRIC ULCER

REACTIONS (2)
  - DRUG INEFFECTIVE [None]
  - DYSPEPSIA [None]
